FAERS Safety Report 9768714 (Version 2)
Quarter: 2014Q1

REPORT INFORMATION
  Report Type: Spontaneous
  Country: US (occurrence: US)
  Receive Date: 20131218
  Receipt Date: 20140203
  Transmission Date: 20141002
  Serious: No
  Sender: FDA-Public Use
  Company Number: US-BIOGENIDEC-2013BI118827

PATIENT
  Age: 44 Year
  Sex: Female

DRUGS (15)
  1. TYSABRI [Suspect]
     Indication: MULTIPLE SCLEROSIS
     Route: 042
     Dates: start: 20130313, end: 20131002
  2. AMBIEN [Concomitant]
     Route: 048
  3. GABAPENTIN [Concomitant]
  4. TIZANIDINE HCL [Concomitant]
  5. BENZAPRIL [Concomitant]
     Route: 048
  6. ROPINIROLE [Concomitant]
     Route: 048
  7. MODAFINIL [Concomitant]
     Route: 048
  8. ABILIFY [Concomitant]
     Route: 048
  9. HYDROCHLORATHIAZIDE [Concomitant]
     Route: 048
  10. SYNTHROID [Concomitant]
     Route: 048
  11. SEROQUEL [Concomitant]
     Route: 048
  12. ZANAFLEX [Concomitant]
     Route: 048
  13. ZALEPON [Concomitant]
  14. ESTRACE [Concomitant]
  15. GELNIQUE [Concomitant]

REACTIONS (2)
  - Pituitary tumour benign [Not Recovered/Not Resolved]
  - Hypertension [Not Recovered/Not Resolved]
